FAERS Safety Report 21089678 (Version 1)
Quarter: 2022Q3

REPORT INFORMATION
  Report Type: Spontaneous
  Country: US (occurrence: US)
  Receive Date: 20220715
  Receipt Date: 20220715
  Transmission Date: 20221027
  Serious: No
  Sender: FDA-Public Use
  Company Number: US-MYLANLABS-2022M1050059

PATIENT
  Sex: Female

DRUGS (2)
  1. SEMGLEE (INSULIN GLARGINE-YFGN) [Suspect]
     Active Substance: INSULIN GLARGINE-YFGN
     Indication: Gestational diabetes
     Dosage: UNK, 33 UNITS
     Route: 065
  2. ADMELOG [Concomitant]
     Active Substance: INSULIN LISPRO
     Indication: Gestational diabetes
     Dosage: UNK, 24 UNITS EVERY MEAL
     Route: 065

REACTIONS (2)
  - Maternal exposure during pregnancy [Unknown]
  - Device mechanical issue [Unknown]
